FAERS Safety Report 5493249-0 (Version None)
Quarter: 2007Q4

REPORT INFORMATION
  Report Type: 
  Country: None (occurrence: None)
  Receive Date: 20071022
  Receipt Date: 20071022
  Transmission Date: 20080405
  Serious: Yes (Other)
  Sender: FDA-Public Use
  Company Number: None

PATIENT
  Sex: Female

DRUGS (1)
  1. BONIVA [Suspect]
     Indication: OSTEOPENIA
     Dosage: 1 MONTHLY ORAL
     Route: 048

REACTIONS (3)
  - EAR DISORDER [None]
  - JOINT DISLOCATION [None]
  - PAIN IN JAW [None]
